FAERS Safety Report 24860081 (Version 1)
Quarter: 2025Q1

REPORT INFORMATION
  Report Type: Report from Study
  Country: US (occurrence: US)
  Receive Date: 20250120
  Receipt Date: 20250120
  Transmission Date: 20250409
  Serious: Yes (Other)
  Sender: ABBVIE
  Company Number: US-ABBVIE-6032905

PATIENT
  Age: 62 Year
  Sex: Female
  Weight: 68.945 kg

DRUGS (8)
  1. HUMIRA [Suspect]
     Active Substance: ADALIMUMAB
     Indication: Crohn^s disease
     Dosage: CITRATE FREE
     Route: 058
     Dates: start: 202408, end: 202411
  2. HUMIRA [Suspect]
     Active Substance: ADALIMUMAB
     Dosage: CITRATE FREE
     Route: 058
     Dates: start: 20241130
  3. LYRICA [Concomitant]
     Active Substance: PREGABALIN
     Indication: Neuropathy peripheral
  4. SAVELLA [Concomitant]
     Active Substance: MILNACIPRAN HYDROCHLORIDE
     Indication: Fibromyalgia
  5. Sevela [Concomitant]
     Indication: Fibromyalgia
  6. GUAIFENESIN [Concomitant]
     Active Substance: GUAIFENESIN
     Indication: Post-acute COVID-19 syndrome
  7. GUANFACINE [Concomitant]
     Active Substance: GUANFACINE
     Indication: Post-acute COVID-19 syndrome
  8. ZOSTER [Concomitant]
     Indication: Product used for unknown indication

REACTIONS (3)
  - Intestinal obstruction [Recovered/Resolved]
  - Abdominal distension [Recovered/Resolved]
  - Discomfort [Unknown]

NARRATIVE: CASE EVENT DATE: 20241101
